FAERS Safety Report 9681191 (Version 1)
Quarter: 2013Q4

REPORT INFORMATION
  Report Type: Spontaneous
  Country: US (occurrence: US)
  Receive Date: 20131111
  Receipt Date: 20131111
  Transmission Date: 20140711
  Serious: Yes (Other)
  Sender: FDA-Public Use
  Company Number: US-TEVA-443456USA

PATIENT
  Sex: Female

DRUGS (2)
  1. LAMOTRIGINE [Suspect]
     Indication: PAIN
     Dosage: 300 MILLIGRAM DAILY;
     Route: 048
  2. LAMOTRIGINE [Suspect]
     Indication: IMMOBILE

REACTIONS (4)
  - Immobile [Unknown]
  - Drug ineffective [Unknown]
  - Pain [Unknown]
  - Therapeutic response unexpected with drug substitution [Unknown]
